FAERS Safety Report 4847007-8 (Version None)
Quarter: 2005Q4

REPORT INFORMATION
  Report Type: 
  Country: None (occurrence: None)
  Receive Date: 20051201
  Receipt Date: 20051115
  Transmission Date: 20060501
  Serious: Yes (Hospitalization)
  Sender: FDA-Public Use
  Company Number: 0511-629

PATIENT
  Sex: Female

DRUGS (11)
  1. DUONEB [Suspect]
     Indication: ASTHMA
     Dosage: QID PRN
  2. HECTOROL [Concomitant]
  3. METOPROLOL [Concomitant]
  4. PLAVIX [Concomitant]
  5. CRESTOR [Concomitant]
  6. FUROSEMIDE [Concomitant]
  7. GLYBURIDE [Concomitant]
  8. PHOSLO [Concomitant]
  9. NORVASC [Concomitant]
  10. PAROXETINE HCL [Concomitant]
  11. HYDRALAZINE [Concomitant]

REACTIONS (2)
  - ASTHMA [None]
  - CONDITION AGGRAVATED [None]
